FAERS Safety Report 13085386 (Version 2)
Quarter: 2017Q1

REPORT INFORMATION
  Report Type: Spontaneous
  Country: JP (occurrence: JP)
  Receive Date: 20170104
  Receipt Date: 20170208
  Transmission Date: 20170428
  Serious: Yes (Hospitalization)
  Sender: FDA-Public Use
  Company Number: JP-ELI_LILLY_AND_COMPANY-JP201612008489

PATIENT
  Age: 75 Year
  Sex: Male

DRUGS (4)
  1. IRINOTECAN [Concomitant]
     Active Substance: IRINOTECAN
     Indication: COLORECTAL ADENOCARCINOMA
     Dosage: 107 MG/M2, OTHER
     Route: 042
     Dates: start: 20161207, end: 20161207
  2. LEVOFOLINATE CALCIUM [Concomitant]
     Active Substance: LEVOLEUCOVORIN CALCIUM
     Indication: COLORECTAL ADENOCARCINOMA
     Dosage: 400 MG/M2, OTHER
     Route: 042
     Dates: start: 20161207, end: 20161207
  3. 5 FU [Concomitant]
     Active Substance: FLUOROURACIL
     Indication: COLORECTAL ADENOCARCINOMA
     Dosage: 2400 MG/M2, OTHER
     Route: 042
     Dates: start: 20161207, end: 20161207
  4. CYRAMZA [Suspect]
     Active Substance: RAMUCIRUMAB
     Indication: COLORECTAL ADENOCARCINOMA
     Dosage: 8 MG/KG, OTHER
     Route: 042
     Dates: start: 20161207, end: 20161207

REACTIONS (2)
  - Febrile neutropenia [Recovering/Resolving]
  - Pneumonia [Recovering/Resolving]

NARRATIVE: CASE EVENT DATE: 20161214
